FAERS Safety Report 9251333 (Version 3)
Quarter: 2019Q2

REPORT INFORMATION
  Report Type: Spontaneous
  Country: US (occurrence: US)
  Receive Date: 20130424
  Receipt Date: 20190607
  Transmission Date: 20190711
  Serious: Yes (Hospitalization, Other)
  Sender: FDA-Public Use
  Company Number: US-ASTRAZENECA-2013SE27354

PATIENT

DRUGS (8)
  1. PRILOSEC OTC [Suspect]
     Active Substance: OMEPRAZOLE MAGNESIUM
     Route: 048
     Dates: start: 201307, end: 201708
  2. NEXIUM 24HR [Suspect]
     Active Substance: ESOMEPRAZOLE MAGNESIUM
     Route: 048
     Dates: start: 201307, end: 201708
  3. PREVACID [Suspect]
     Active Substance: LANSOPRAZOLE
     Route: 065
     Dates: start: 201307, end: 201708
  4. PRILOSEC [Suspect]
     Active Substance: OMEPRAZOLE MAGNESIUM
     Route: 048
     Dates: start: 201307, end: 201708
  5. PROTONIX [Suspect]
     Active Substance: PANTOPRAZOLE SODIUM
     Route: 065
     Dates: start: 201307, end: 201708
  6. DEXILANT [Suspect]
     Active Substance: DEXLANSOPRAZOLE
     Route: 065
     Dates: start: 201307, end: 201708
  7. NEXIUM [Suspect]
     Active Substance: ESOMEPRAZOLE MAGNESIUM
     Route: 048
     Dates: start: 201307, end: 201708
  8. PREVACID 24 HR [Suspect]
     Active Substance: LANSOPRAZOLE
     Route: 065
     Dates: start: 201307, end: 201708

REACTIONS (8)
  - End stage renal disease [Unknown]
  - Acute kidney injury [Unknown]
  - Osteoporosis [Unknown]
  - Chronic kidney disease [Unknown]
  - Multiple fractures [Unknown]
  - Tubulointerstitial nephritis [Unknown]
  - Renal injury [Unknown]
  - Bone density decreased [Unknown]

NARRATIVE: CASE EVENT DATE: 2016
